FAERS Safety Report 6355012-8 (Version None)
Quarter: 2009Q3

REPORT INFORMATION
  Report Type: 
  Country: None (occurrence: None)
  Receive Date: 20090914
  Receipt Date: 20090904
  Transmission Date: 20100115
  Serious: Yes (Hospitalization)
  Sender: FDA-Public Use
  Company Number: B0572592A

PATIENT
  Sex: Female

DRUGS (3)
  1. ULCEX [Suspect]
     Dosage: 300MG PER DAY
     Route: 048
     Dates: start: 20060101, end: 20090420
  2. VALPRESSION [Suspect]
     Indication: HYPERTENSION
     Dosage: 160MG PER DAY
     Route: 048
     Dates: start: 20050101, end: 20090420
  3. COMBISARTAN [Suspect]
     Indication: HYPERTENSION
     Route: 048
     Dates: start: 20060101, end: 20090420

REACTIONS (2)
  - CONTUSION [None]
  - THROMBOCYTOPENIA [None]
